FAERS Safety Report 20362783 (Version 1)
Quarter: 2022Q1

REPORT INFORMATION
  Report Type: Spontaneous
  Country: CN (occurrence: CN)
  Receive Date: 20220121
  Receipt Date: 20220121
  Transmission Date: 20220424
  Serious: Yes (Other)
  Sender: FDA-Public Use
  Company Number: CN-ELI_LILLY_AND_COMPANY-CN202201003381

PATIENT
  Age: 42 Year
  Sex: Female

DRUGS (3)
  1. CIALIS [Suspect]
     Active Substance: TADALAFIL
     Indication: Erectile dysfunction
     Dosage: 20 MG, UNKNOWN
     Route: 065
     Dates: start: 202111
  2. CIALIS [Suspect]
     Active Substance: TADALAFIL
     Indication: Benign prostatic hyperplasia
  3. CIALIS [Suspect]
     Active Substance: TADALAFIL
     Indication: Pulmonary hypertension

REACTIONS (1)
  - Cardiac failure [Unknown]

NARRATIVE: CASE EVENT DATE: 20220105
